APPROVED DRUG PRODUCT: TIMOLOL MALEATE
Active Ingredient: TIMOLOL MALEATE
Strength: EQ 0.5% BASE
Dosage Form/Route: SOLUTION/DROPS;OPHTHALMIC
Application: A212592 | Product #002 | TE Code: AT3
Applicant: AMRING PHARMACEUTICALS INC
Approved: Dec 13, 2021 | RLD: No | RS: No | Type: RX